FAERS Safety Report 20961203 (Version 1)
Quarter: 2022Q2

REPORT INFORMATION
  Report Type: Spontaneous
  Country: US (occurrence: US)
  Receive Date: 20220615
  Receipt Date: 20220615
  Transmission Date: 20220721
  Serious: Yes (Death, Other)
  Sender: FDA-Public Use
  Company Number: US-BRISTOL-MYERS SQUIBB COMPANY-2022-044176

PATIENT
  Age: 63 Year
  Sex: Female

DRUGS (2)
  1. IDHIFA [Suspect]
     Active Substance: ENASIDENIB MESYLATE
     Indication: Acute myeloid leukaemia
     Dosage: FREQUENCY ONCE DAILY
     Route: 048
     Dates: start: 20220412
  2. IDHIFA [Suspect]
     Active Substance: ENASIDENIB MESYLATE
     Indication: Myelodysplastic syndrome
     Dosage: ONCE DAILY
     Route: 048
     Dates: start: 20220413

REACTIONS (3)
  - Bone pain [Unknown]
  - Bronchitis [Unknown]
  - Death [Fatal]

NARRATIVE: CASE EVENT DATE: 20220601
